FAERS Safety Report 25746459 (Version 1)
Quarter: 2025Q3

REPORT INFORMATION
  Report Type: Spontaneous
  Country: EU (occurrence: EU)
  Receive Date: 20250901
  Receipt Date: 20250901
  Transmission Date: 20251021
  Serious: Yes (Hospitalization)
  Sender: MITEM PHARMA
  Company Number: EU-MITEM PHARMA-202500010

PATIENT
  Age: 33 Year
  Sex: Female
  Weight: 81 kg

DRUGS (4)
  1. DESFERAL [Suspect]
     Active Substance: DEFEROXAMINE MESYLATE
     Indication: Thalassaemia beta
  2. FOLIC ACID [Concomitant]
     Active Substance: FOLIC ACID
  3. AMOXICILLIN\CLAVULANIC ACID [Concomitant]
     Active Substance: AMOXICILLIN\CLAVULANIC ACID
  4. CLARITHROMYCIN [Concomitant]
     Active Substance: CLARITHROMYCIN

REACTIONS (3)
  - Acute respiratory failure [Recovering/Resolving]
  - Acute respiratory distress syndrome [Recovering/Resolving]
  - General physical health deterioration [Recovered/Resolved]
